FAERS Safety Report 10281906 (Version 4)
Quarter: 2014Q4

REPORT INFORMATION
  Report Type: Spontaneous
  Country: DE (occurrence: DE)
  Receive Date: 20140707
  Receipt Date: 20141111
  Transmission Date: 20150528
  Serious: Yes (Life-Threatening, Hospitalization, Disabling, Other)
  Sender: FDA-Public Use
  Company Number: DE-TEVA-383193GER

PATIENT
  Age: 33 Year
  Sex: Female
  Weight: 60 kg

DRUGS (10)
  1. PARACETAMOL [Suspect]
     Active Substance: ACETAMINOPHEN
     Indication: CERVICOGENIC HEADACHE
     Dosage: FREQUENTLY
     Route: 048
  2. KATADOLON S LONG [Suspect]
     Active Substance: FLUPIRTINE
     Indication: CERVICOGENIC HEADACHE
     Dosage: 200 MILLIGRAM DAILY;
     Route: 048
     Dates: start: 20121213, end: 20130114
  3. SUMATRIPTAN 100 MG [Concomitant]
     Active Substance: SUMATRIPTAN
     Indication: MIGRAINE
     Route: 048
     Dates: start: 2009
  4. METOPROLOL [Concomitant]
     Active Substance: METOPROLOL
     Indication: MIGRAINE
  5. KATADOLON S LONG [Suspect]
     Active Substance: FLUPIRTINE
     Indication: MIGRAINE
  6. IBUPROFEN. [Suspect]
     Active Substance: IBUPROFEN
     Route: 048
  7. PROCAINE-BASE INFUSION [Concomitant]
     Indication: MIGRAINE
     Route: 041
     Dates: start: 20130107, end: 20130107
  8. PROCAINE-BASE INFUSION [Concomitant]
     Route: 041
     Dates: start: 20130110, end: 20130110
  9. KATADOLON S LONG [Suspect]
     Active Substance: FLUPIRTINE
     Indication: NECK PAIN
  10. CONTRACEPTIVES [Concomitant]
     Active Substance: UNSPECIFIED INGREDIENT

REACTIONS (4)
  - Renal impairment [Not Recovered/Not Resolved]
  - Acute kidney injury [Not Recovered/Not Resolved]
  - Acute hepatic failure [Unknown]
  - General physical health deterioration [Not Recovered/Not Resolved]

NARRATIVE: CASE EVENT DATE: 20130114
